FAERS Safety Report 5288194-X (Version None)
Quarter: 2007Q1

REPORT INFORMATION
  Report Type: 
  Country: None (occurrence: None)
  Receive Date: 20070116
  Receipt Date: 20060803
  Transmission Date: 20070707
  Serious: Yes (Hospitalization)
  Sender: FDA-Public Use
  Company Number: FEI2006-1110

PATIENT
  Age: 22 Year
  Sex: Female
  Weight: 61.6892 kg

DRUGS (1)
  1. INTRAUTERINE COPPER CONTRACEPTIVE [Suspect]
     Indication: CONTRACEPTION
     Dosage: INTRA-UTERINE
     Route: 015
     Dates: start: 20060726, end: 20060803

REACTIONS (5)
  - IUCD COMPLICATION [None]
  - IUD MIGRATION [None]
  - OVARIAN CYST [None]
  - PERITONEAL ADHESIONS [None]
  - UTERINE PERFORATION [None]
